FAERS Safety Report 24916023 (Version 2)
Quarter: 2025Q1

REPORT INFORMATION
  Report Type: Spontaneous
  Country: JP (occurrence: JP)
  Receive Date: 20250203
  Receipt Date: 20250220
  Transmission Date: 20250409
  Serious: Yes (Other)
  Sender: ARGENX BVBA
  Company Number: JP-ARGENX-2025-ARGX-JP000667AA

PATIENT

DRUGS (1)
  1. EFGARTIGIMOD ALFA\HYALURONIDASE-QVFC [Suspect]
     Active Substance: EFGARTIGIMOD ALFA\HYALURONIDASE-QVFC
     Indication: Myasthenia gravis
     Route: 058
     Dates: start: 20250109

REACTIONS (5)
  - Nausea [Recovered/Resolved]
  - Nausea [Recovered/Resolved]
  - Eye disorder [Not Recovered/Not Resolved]
  - Procedural headache [Recovered/Resolved]
  - Procedural headache [Recovered/Resolved]

NARRATIVE: CASE EVENT DATE: 20250110
